FAERS Safety Report 8403468-9 (Version None)
Quarter: 2012Q2

REPORT INFORMATION
  Report Type: 
  Country: None (occurrence: None)
  Receive Date: 20120601
  Receipt Date: 20120217
  Transmission Date: 20120825
  Serious: Yes (Death, Life-Threatening, Hospitalization, Other)
  Sender: FDA-Public Use
  Company Number: JP-BRISTOL-MYERS SQUIBB COMPANY-16360190

PATIENT
  Age: 80 Year
  Sex: Male
  Weight: 45 kg

DRUGS (1)
  1. ABILIFY [Suspect]
     Indication: PSYCHIATRIC SYMPTOM
     Dosage: 0.1% PERCENT 12MG/DAY
     Route: 048
     Dates: start: 20120110, end: 20120113

REACTIONS (7)
  - THROMBOCYTOPENIA [None]
  - PYREXIA [None]
  - DIASTOLIC HYPERTENSION [None]
  - PERIPHERAL ARTERIAL OCCLUSIVE DISEASE [None]
  - PNEUMONIA [None]
  - LIVER DISORDER [None]
  - NECROSIS ISCHAEMIC [None]
